FAERS Safety Report 9088016 (Version 1)
Quarter: 2013Q1

REPORT INFORMATION
  Report Type: Spontaneous
  Country: BR (occurrence: BR)
  Receive Date: 20130201
  Receipt Date: 20130201
  Transmission Date: 20140127
  Serious: Yes (Hospitalization)
  Sender: FDA-Public Use
  Company Number: BR-PFIZER INC-2013039822

PATIENT
  Age: 79 Year
  Sex: Male

DRUGS (7)
  1. LIPITOR [Suspect]
     Dosage: 20 MG, 1X/DAY
     Route: 048
     Dates: start: 201206, end: 20120831
  2. AAS [Concomitant]
     Dosage: UNK
  3. ANCORON [Concomitant]
     Dosage: UNK
  4. CARVEDILOL [Concomitant]
     Dosage: UNK
  5. ICTUS [Concomitant]
     Dosage: UNK
  6. LIPLESS [Concomitant]
     Dosage: UNK
  7. VASTAREL [Concomitant]
     Dosage: UNK

REACTIONS (1)
  - Cardiac disorder [Unknown]
